FAERS Safety Report 19251822 (Version 1)
Quarter: 2021Q2

REPORT INFORMATION
  Report Type: Report from Study
  Country: US (occurrence: US)
  Receive Date: 20210512
  Receipt Date: 20210512
  Transmission Date: 20210717
  Serious: Yes (Other)
  Sender: FDA-Public Use
  Company Number: US-EMD SERONO-E2B_80036459

PATIENT
  Age: 59 Year
  Sex: Male
  Weight: 82 kg

DRUGS (2)
  1. REBIF [Suspect]
     Active Substance: INTERFERON BETA-1A
     Route: 058
     Dates: start: 20161024
  2. REBIF [Suspect]
     Active Substance: INTERFERON BETA-1A
     Indication: PRODUCT USED FOR UNKNOWN INDICATION
     Route: 058
     Dates: start: 20030331

REACTIONS (13)
  - Injection site haemorrhage [Not Recovered/Not Resolved]
  - Injection site bruising [Not Recovered/Not Resolved]
  - Nasopharyngitis [Unknown]
  - Retching [Unknown]
  - Influenza like illness [Not Recovered/Not Resolved]
  - Peripheral vascular disorder [Unknown]
  - Pain in extremity [Unknown]
  - Paranasal sinus hypersecretion [Recovered/Resolved]
  - Dysphagia [Unknown]
  - Injection site erythema [Recovering/Resolving]
  - Dehydration [Not Recovered/Not Resolved]
  - Thrombosis [Recovered/Resolved]
  - Hypersensitivity [Unknown]

NARRATIVE: CASE EVENT DATE: 200303
